FAERS Safety Report 11815565 (Version 2)
Quarter: 2016Q1

REPORT INFORMATION
  Report Type: Report from Study
  Country: NL (occurrence: NL)
  Receive Date: 20151209
  Receipt Date: 20160120
  Transmission Date: 20160525
  Serious: Yes (Other)
  Sender: FDA-Public Use
  Company Number: PHHY2015NL160431

PATIENT
  Age: 55 Year
  Sex: Female

DRUGS (1)
  1. ACLASTA [Suspect]
     Active Substance: ZOLEDRONIC ACID
     Indication: OSTEOPOROSIS
     Dosage: 5 MG, 1 X PER 52 WEEKS
     Route: 042
     Dates: start: 20141124

REACTIONS (2)
  - Drug ineffective [Unknown]
  - Metastasis [Unknown]

NARRATIVE: CASE EVENT DATE: 20151202
